FAERS Safety Report 10819452 (Version 1)
Quarter: 2015Q1

REPORT INFORMATION
  Report Type: Spontaneous
  Country: US (occurrence: US)
  Receive Date: 20150218
  Receipt Date: 20150218
  Transmission Date: 20150721
  Serious: Yes (Other)
  Sender: FDA-Public Use
  Company Number: US-ABBVIE-14K-163-1296226-00

PATIENT
  Age: 55 Year
  Sex: Female
  Weight: 88.53 kg

DRUGS (4)
  1. HUMIRA [Suspect]
     Active Substance: ADALIMUMAB
     Indication: CROHN^S DISEASE
     Route: 065
     Dates: start: 201204, end: 201204
  2. HUMIRA [Suspect]
     Active Substance: ADALIMUMAB
     Route: 065
     Dates: start: 201204, end: 201210
  3. OXYCODONE [Concomitant]
     Active Substance: OXYCODONE
     Indication: PAIN
  4. HUMIRA [Suspect]
     Active Substance: ADALIMUMAB
     Route: 065
     Dates: start: 201406

REACTIONS (9)
  - Colectomy [Unknown]
  - Device issue [Unknown]
  - Eye swelling [Recovering/Resolving]
  - Ileostomy closure [Recovered/Resolved]
  - Weight increased [Not Recovered/Not Resolved]
  - Salt craving [Not Recovered/Not Resolved]
  - Swelling face [Recovering/Resolving]
  - Blister [Not Recovered/Not Resolved]
  - Joint swelling [Recovering/Resolving]

NARRATIVE: CASE EVENT DATE: 201210
